FAERS Safety Report 15110488 (Version 1)
Quarter: 2018Q2

REPORT INFORMATION
  Report Type: Spontaneous
  Country: US (occurrence: US)
  Receive Date: 20180612
  Receipt Date: 20180612
  Transmission Date: 20180711
  Serious: No
  Sender: FDA-Public Use
  Company Number: None

PATIENT
  Age: 69 Year
  Sex: Female

DRUGS (1)
  1. XELJANZ [Suspect]
     Active Substance: TOFACITINIB CITRATE
     Indication: RHEUMATOID ARTHRITIS
     Route: 048
     Dates: start: 20170929

REACTIONS (7)
  - Erythema [None]
  - Rash papular [None]
  - Pain in extremity [None]
  - Haemorrhage [None]
  - Wound [None]
  - Scab [None]
  - Herpes zoster [None]

NARRATIVE: CASE EVENT DATE: 20180226
